FAERS Safety Report 14857412 (Version 3)
Quarter: 2018Q3

REPORT INFORMATION
  Report Type: Spontaneous
  Country: US (occurrence: US)
  Receive Date: 20180508
  Receipt Date: 20180807
  Transmission Date: 20181010
  Serious: Yes (Other)
  Sender: FDA-Public Use
  Company Number: US-RADIUS HEALTH INC.-2018US000442

PATIENT
  Age: 55 Year
  Sex: Female
  Weight: 74.83 kg

DRUGS (1)
  1. TYMLOS [Suspect]
     Active Substance: ABALOPARATIDE
     Indication: OSTEOPOROSIS POSTMENOPAUSAL
     Dosage: 80 MCG, DAILY
     Route: 058
     Dates: start: 201802

REACTIONS (2)
  - Hernia [Unknown]
  - Surgery [Unknown]

NARRATIVE: CASE EVENT DATE: 201803
